FAERS Safety Report 9681633 (Version 2)
Quarter: 2013Q4

REPORT INFORMATION
  Report Type: Spontaneous
  Country: US (occurrence: US)
  Receive Date: 20131111
  Receipt Date: 20131111
  Transmission Date: 20140711
  Serious: Yes (Hospitalization, Other)
  Sender: FDA-Public Use
  Company Number: US-PFIZER INC-2013318775

PATIENT
  Age: 76 Year
  Sex: Female
  Weight: 64.4 kg

DRUGS (5)
  1. GABAPENTIN [Suspect]
     Dosage: 600 MG, UNK
     Dates: start: 2012, end: 2012
  2. GABAPENTIN [Suspect]
     Dosage: 600 MG, UNK
  3. ADVIL [Suspect]
     Indication: ARTHRITIS
     Dosage: UNK
  4. ASPIRIN [Suspect]
     Indication: ATRIOVENTRICULAR BLOCK
     Dosage: UNK
  5. HYDROMORPHONE [Suspect]
     Indication: PAIN
     Dosage: UNK

REACTIONS (7)
  - Colitis ischaemic [Unknown]
  - Cerebrovascular accident [Unknown]
  - Ulcer haemorrhage [Unknown]
  - Drug ineffective [Unknown]
  - Feeling abnormal [Unknown]
  - Pain [Unknown]
  - Mobility decreased [Unknown]
